FAERS Safety Report 8525337-6 (Version None)
Quarter: 2012Q3

REPORT INFORMATION
  Report Type: 
  Country: None (occurrence: None)
  Receive Date: 20120720
  Receipt Date: 20120718
  Transmission Date: 20120928
  Serious: Yes (Death, Disabling)
  Sender: FDA-Public Use
  Company Number: PHHY2012NO061773

PATIENT
  Sex: Male

DRUGS (8)
  1. GLIPIZIDE [Concomitant]
  2. DIURAL [Concomitant]
  3. ZOMETA [Suspect]
     Indication: MULTIPLE MYELOMA
  4. METFORMIN HYDROCHLORIDE [Concomitant]
  5. PRAVACHOL [Concomitant]
  6. ZESTORETIC [Concomitant]
  7. ASPIRIN [Concomitant]
  8. NORVASC [Concomitant]

REACTIONS (2)
  - DEATH [None]
  - OSTEONECROSIS OF JAW [None]
